FAERS Safety Report 9290285 (Version 1)
Quarter: 2013Q2

REPORT INFORMATION
  Report Type: Spontaneous
  Country: US (occurrence: None)
  Receive Date: 20130514
  Receipt Date: 20130514
  Transmission Date: 20140414
  Serious: Yes (Hospitalization)
  Sender: FDA-Public Use
  Company Number: None

PATIENT
  Age: 16 Year
  Sex: Female
  Weight: 85.73 kg

DRUGS (2)
  1. PROZAC [Suspect]
     Indication: DEPRESSION
     Dosage: 20MG QD PO
     Route: 048
     Dates: start: 20121211, end: 20130513
  2. PROZAC [Suspect]
     Indication: ANXIETY
     Dosage: 20MG QD PO
     Route: 048
     Dates: start: 20121211, end: 20130513

REACTIONS (1)
  - Suicidal ideation [None]
